FAERS Safety Report 7792561-X (Version None)
Quarter: 2011Q4

REPORT INFORMATION
  Report Type: 
  Country: None (occurrence: None)
  Receive Date: 20111003
  Receipt Date: 20110927
  Transmission Date: 20120403
  Serious: Yes (Death, Other)
  Sender: FDA-Public Use
  Company Number: US-ASTRAZENECA-2011SE50904

PATIENT
  Age: 45 Year
  Sex: Male

DRUGS (7)
  1. MORPHINE SULFATE [Concomitant]
     Route: 048
  2. PINK MAGIC [Concomitant]
     Dosage: 5 ML, FOUR TIMES A DAY
     Route: 048
  3. PREDNISONE [Concomitant]
     Route: 048
  4. VANDETANIB [Suspect]
     Indication: THYROID CANCER
     Route: 048
     Dates: start: 20110414
  5. LACTULOSE [Concomitant]
     Dosage: 10 GM/ 15 ML AS REQUIRED
     Route: 048
  6. OXYCONTIN [Concomitant]
     Dosage: 80 MG, EVERY 12 HOURS
     Route: 048
  7. SENNA LAX [Concomitant]
     Dosage: 8.6 MG, TWO TIMES A DAY
     Route: 048

REACTIONS (3)
  - MUSCLE SPASMS [None]
  - BONE NEOPLASM MALIGNANT [None]
  - SMALL CELL LUNG CANCER METASTATIC [None]
